FAERS Safety Report 8614795-4 (Version None)
Quarter: 2012Q3

REPORT INFORMATION
  Report Type: 
  Country: None (occurrence: None)
  Receive Date: 20120823
  Receipt Date: 20120821
  Transmission Date: 20120928
  Serious: Yes (Other)
  Sender: FDA-Public Use
  Company Number: JP-PFIZER INC-2012204060

PATIENT

DRUGS (1)
  1. DIFLORASONE DIACETATE [Suspect]
     Indication: PRURITUS
     Dosage: UNK
     Route: 064

REACTIONS (2)
  - HYPERADRENOCORTICISM [None]
  - MATERNAL EXPOSURE TIMING UNSPECIFIED [None]
